FAERS Safety Report 8916259 (Version 1)
Quarter: 2012Q4

REPORT INFORMATION
  Report Type: 
  Country: US (occurrence: US)
  Receive Date: 20121120
  Receipt Date: 20121120
  Transmission Date: 20130627
  Serious: Yes (Hospitalization)
  Sender: FDA-Public Use
  Company Number: US-ELI_LILLY_AND_COMPANY-US201211003865

PATIENT
  Age: 78 Year
  Sex: Female

DRUGS (4)
  1. FORTEO [Suspect]
     Indication: OSTEOPOROSIS
     Dosage: 20 ug, qd
     Dates: start: 20120227, end: 201207
  2. SYNTHROID [Concomitant]
     Dosage: UNK, qd
  3. METOPROLOL [Concomitant]
     Dosage: UNK, qd
  4. CELEBREX [Concomitant]
     Dosage: UNK, qd

REACTIONS (2)
  - Hip arthroplasty [Recovering/Resolving]
  - Blood pressure abnormal [Unknown]
